FAERS Safety Report 17280231 (Version 1)
Quarter: 2020Q1

REPORT INFORMATION
  Report Type: Spontaneous
  Country: FR (occurrence: FR)
  Receive Date: 20200117
  Receipt Date: 20200117
  Transmission Date: 20200409
  Serious: Yes (Hospitalization)
  Sender: FDA-Public Use
  Company Number: FR-UCBSA-2020001260

PATIENT
  Age: 34 Year
  Sex: Female
  Weight: 52 kg

DRUGS (3)
  1. KEPPRA [Suspect]
     Active Substance: LEVETIRACETAM
     Indication: MYOCLONIC EPILEPSY
     Dosage: 1000 MG DAILY
     Route: 048
     Dates: start: 201709
  2. FYCOMPA [Suspect]
     Active Substance: PERAMPANEL
     Dosage: 2 MG DAILY
     Route: 048
     Dates: start: 201911
  3. FYCOMPA [Suspect]
     Active Substance: PERAMPANEL
     Indication: MYOCLONIC EPILEPSY
     Dosage: 2 MG DAILY
     Route: 048
     Dates: end: 20191026

REACTIONS (3)
  - Preterm premature rupture of membranes [Not Recovered/Not Resolved]
  - Uterine contractions during pregnancy [Not Recovered/Not Resolved]
  - Maternal exposure before pregnancy [Unknown]

NARRATIVE: CASE EVENT DATE: 201906
